FAERS Safety Report 5592476-1 (Version None)
Quarter: 2008Q1

REPORT INFORMATION
  Report Type: 
  Country: None (occurrence: None)
  Receive Date: 20080111
  Receipt Date: 20080107
  Transmission Date: 20080703
  Serious: Yes (Hospitalization)
  Sender: FDA-Public Use
  Company Number: 2008SP000383

PATIENT
  Age: 40 Year
  Sex: Female
  Weight: 85.2 kg

DRUGS (2)
  1. TEMOZOLOMIDE [Suspect]
     Indication: GLIOBLASTOMA MULTIFORME
     Dosage: 75/M2;QD;PO, 75 MG/M2,QD;PO
     Route: 048
     Dates: start: 20071214, end: 20071231
  2. TEMOZOLOMIDE [Suspect]
     Indication: GLIOBLASTOMA MULTIFORME
     Dosage: 75/M2;QD;PO, 75 MG/M2,QD;PO
     Route: 048
     Dates: start: 20071008

REACTIONS (8)
  - ANOREXIA [None]
  - ASTHENIA [None]
  - CHILLS [None]
  - DIARRHOEA [None]
  - DYSPHAGIA [None]
  - INFECTION [None]
  - PYREXIA [None]
  - URINARY TRACT INFECTION [None]
